FAERS Safety Report 8584025 (Version 4)
Quarter: 2013Q1

REPORT INFORMATION
  Report Type: Report from Study
  Country: FR (occurrence: FR)
  Receive Date: 20120529
  Receipt Date: 20130326
  Transmission Date: 20140127
  Serious: Yes (Hospitalization)
  Sender: FDA-Public Use
  Company Number: FR-WATSON-2012-08390

PATIENT
  Age: 70 Year
  Sex: Male
  Weight: 86 kg

DRUGS (3)
  1. RAPAFLO (WATSON LABORATORIES) [Suspect]
     Indication: LOWER URINARY TRACT SYMPTOMS
     Dosage: 8 MG, DAILY
     Route: 048
     Dates: start: 20120208
  2. ALLOPURINOL [Concomitant]
     Indication: PRODUCT USED FOR UNKNOWN INDICATION
     Dosage: 200 MG, UNK
     Route: 065
     Dates: start: 2001
  3. TAHOR [Concomitant]
     Indication: PRODUCT USED FOR UNKNOWN INDICATION
     Dosage: 10 MG, UNK
     Route: 065
     Dates: start: 2005, end: 201204

REACTIONS (1)
  - Cerebrovascular accident [Recovered/Resolved with Sequelae]
